FAERS Safety Report 6024827-8 (Version None)
Quarter: 2008Q4

REPORT INFORMATION
  Report Type: 
  Country: None (occurrence: None)
  Receive Date: 20081230
  Receipt Date: 20081230
  Transmission Date: 20090506
  Serious: Yes (Other)
  Sender: FDA-Public Use
  Company Number: None

PATIENT
  Sex: Female
  Weight: 58.9676 kg

DRUGS (1)
  1. EXELON [Suspect]
     Indication: MEMORY IMPAIRMENT
     Dosage: ONE PATCH DAILY TOP
     Route: 061
     Dates: start: 20081008, end: 20081223

REACTIONS (7)
  - APPLICATION SITE PRURITUS [None]
  - APPLICATION SITE RASH [None]
  - DRUG INEFFECTIVE [None]
  - ERYTHEMA [None]
  - PAIN IN EXTREMITY [None]
  - SCRATCH [None]
  - SKIN HAEMORRHAGE [None]
